FAERS Safety Report 6825332-9 (Version None)
Quarter: 2010Q3

REPORT INFORMATION
  Report Type: 
  Country: None (occurrence: None)
  Receive Date: 20100708
  Receipt Date: 20061127
  Transmission Date: 20110219
  Serious: No
  Sender: FDA-Public Use
  Company Number: US-PFIZER INC-2006148123

PATIENT
  Sex: Female
  Weight: 70.31 kg

DRUGS (8)
  1. CHANTIX [Suspect]
     Indication: EX-TOBACCO USER
     Dates: start: 20061101
  2. PROTONIX [Concomitant]
  3. HYZAAR [Concomitant]
  4. VICODIN [Concomitant]
  5. OXYCODONE HCL [Concomitant]
  6. ZITHROMAX [Concomitant]
  7. FUROSEMIDE [Concomitant]
  8. ALL OTHER THERAPEUTIC PRODUCTS [Concomitant]

REACTIONS (4)
  - COLD SWEAT [None]
  - NAUSEA [None]
  - TREMOR [None]
  - WITHDRAWAL SYNDROME [None]
